FAERS Safety Report 10068267 (Version 1)
Quarter: 2014Q2

REPORT INFORMATION
  Report Type: Spontaneous
  Country: US (occurrence: US)
  Receive Date: 20140409
  Receipt Date: 20140409
  Transmission Date: 20141212
  Serious: Yes (Other)
  Sender: FDA-Public Use
  Company Number: US-PFIZER INC-2014099704

PATIENT
  Age: 45 Year
  Sex: Male
  Weight: 96.1 kg

DRUGS (1)
  1. CHANTIX [Suspect]
     Indication: SMOKING CESSATION THERAPY
     Dosage: UNK
     Dates: start: 201403

REACTIONS (2)
  - Swollen tongue [Recovering/Resolving]
  - Glossodynia [Recovering/Resolving]
